FAERS Safety Report 12495322 (Version 1)
Quarter: 2016Q2

REPORT INFORMATION
  Report Type: Spontaneous
  Country: US (occurrence: None)
  Receive Date: 20160623
  Receipt Date: 20160623
  Transmission Date: 20160815
  Serious: Yes (Hospitalization)
  Sender: FDA-Public Use
  Company Number: None

PATIENT
  Age: 62 Year
  Sex: Male
  Weight: 118.5 kg

DRUGS (3)
  1. LENALIDOMIDE (CC-5013) [Suspect]
     Active Substance: LENALIDOMIDE
     Dates: end: 20160606
  2. DEXAMETHASONE. [Suspect]
     Active Substance: DEXAMETHASONE
     Dates: end: 20160604
  3. VELCADE [Suspect]
     Active Substance: BORTEZOMIB
     Dates: end: 20160603

REACTIONS (8)
  - Asthenia [None]
  - Presyncope [None]
  - Nausea [None]
  - Bacterial test positive [None]
  - Vomiting [None]
  - Dyspnoea [None]
  - Fall [None]
  - Dizziness postural [None]

NARRATIVE: CASE EVENT DATE: 20160615
